FAERS Safety Report 9537840 (Version 2)
Quarter: 2013Q3

REPORT INFORMATION
  Report Type: Spontaneous
  Country: US (occurrence: US)
  Receive Date: 20130919
  Receipt Date: 20130919
  Transmission Date: 20140515
  Serious: Yes (Other)
  Sender: FDA-Public Use
  Company Number: PHEH2013US017194

PATIENT
  Age: 48 Year
  Sex: Female
  Weight: 63 kg

DRUGS (5)
  1. CLOZARIL [Suspect]
     Indication: SCHIZOPHRENIA
     Dosage: 100 MG, TID
     Route: 048
     Dates: start: 20130812, end: 20130815
  2. FLEXERIL [Concomitant]
     Indication: MUSCLE SPASMS
     Dosage: 10 MG, Q8H
     Route: 048
     Dates: start: 20130812, end: 20130815
  3. PEPCID [Concomitant]
     Indication: GASTROOESOPHAGEAL REFLUX DISEASE
     Dosage: 40 MG, QD
     Route: 048
     Dates: start: 20130812, end: 20130818
  4. LITHIUM [Concomitant]
     Indication: BIPOLAR DISORDER
     Dosage: 450 MG, BID
     Route: 048
     Dates: start: 20130812, end: 20130815
  5. SERTRALINE [Concomitant]
     Indication: PSYCHOTIC DISORDER
     Dosage: 150 MG, QD
     Route: 048
     Dates: start: 20130812, end: 20130815

REACTIONS (8)
  - Tibia fracture [Recovered/Resolved]
  - Haematocrit decreased [Unknown]
  - Red cell distribution width increased [Not Recovered/Not Resolved]
  - Activated partial thromboplastin time shortened [Unknown]
  - Leukocytosis [Recovering/Resolving]
  - Neutrophil count increased [Recovering/Resolving]
  - Lymphocyte count decreased [Recovering/Resolving]
  - Haemoglobin decreased [Unknown]
